FAERS Safety Report 24875418 (Version 3)
Quarter: 2025Q3

REPORT INFORMATION
  Report Type: Report from Study
  Country: JP (occurrence: JP)
  Receive Date: 20250122
  Receipt Date: 20250711
  Transmission Date: 20251020
  Serious: Yes (Death)
  Sender: RIGEL PHARMACEUTICALS
  Company Number: JP-KISSEI-TL20250046_P_1

PATIENT
  Age: 66 Year
  Sex: Female
  Weight: 41.4 kg

DRUGS (1)
  1. FOSTAMATINIB DISODIUM [Suspect]
     Active Substance: FOSTAMATINIB DISODIUM
     Indication: Immune thrombocytopenia
     Dosage: 100 MG BID
     Route: 048
     Dates: start: 20240516, end: 20241207

REACTIONS (2)
  - Pneumothorax [Fatal]
  - Gamma-glutamyltransferase [Unknown]

NARRATIVE: CASE EVENT DATE: 20241010
